FAERS Safety Report 22772098 (Version 2)
Quarter: 2023Q4

REPORT INFORMATION
  Report Type: Spontaneous
  Country: TW (occurrence: TW)
  Receive Date: 20230801
  Receipt Date: 20231101
  Transmission Date: 20240110
  Serious: Yes (Other)
  Sender: FDA-Public Use
  Company Number: TW-BRISTOL-MYERS SQUIBB COMPANY-2022-041186

PATIENT
  Age: 45 Year
  Sex: Male
  Weight: 48 kg

DRUGS (1)
  1. OPDIVO [Suspect]
     Active Substance: NIVOLUMAB
     Indication: Transitional cell carcinoma
     Route: 042
     Dates: start: 202101, end: 202112

REACTIONS (3)
  - Fatigue [Unknown]
  - Prescribed overdose [Unknown]
  - Depression [Unknown]

NARRATIVE: CASE EVENT DATE: 20211101
